FAERS Safety Report 7242182-2 (Version None)
Quarter: 2011Q1

REPORT INFORMATION
  Report Type: 
  Country: None (occurrence: None)
  Receive Date: 20110124
  Receipt Date: 20101130
  Transmission Date: 20110831
  Serious: Yes (Other)
  Sender: FDA-Public Use
  Company Number: PHHY2010BR85032

PATIENT
  Sex: Female

DRUGS (5)
  1. BENICAR [Concomitant]
     Indication: HYPERTENSION
     Dosage: 1 TABLET (40 MG) A DAY
     Route: 048
  2. CYMBALTA [Concomitant]
     Indication: DEPRESSION
     Dosage: 1 TABLET (60 MG) A DAY
     Route: 048
  3. SELOZOK [Concomitant]
     Indication: HYPERTENSION
     Dosage: 1 TABLET (100 MG) A DAY
     Route: 048
  4. METFORMIN HCL [Concomitant]
     Indication: TYPE 2 DIABETES MELLITUS
     Dosage: 1 TABLET (500 MG ) A DAY
     Route: 048
  5. DIOVAN AMLO FIX [Suspect]
     Dosage: ONE TABLET (160/5 MG) A DAY

REACTIONS (1)
  - BLOOD PRESSURE INCREASED [None]
